FAERS Safety Report 9907374 (Version 2)
Quarter: 2014Q2

REPORT INFORMATION
  Report Type: Spontaneous
  Country: US (occurrence: US)
  Receive Date: 20140218
  Receipt Date: 20140506
  Transmission Date: 20141212
  Serious: Yes (Other)
  Sender: FDA-Public Use
  Company Number: US-GILEAD-2014-0094654

PATIENT
  Sex: Female

DRUGS (14)
  1. LETAIRIS [Suspect]
     Indication: PULMONARY ARTERIAL HYPERTENSION
     Dosage: 10 MG, QD
     Route: 065
     Dates: start: 20130802
  2. ALBUTEROL                          /00139501/ [Concomitant]
  3. ALPRAZOLAN [Concomitant]
  4. CALCIUM W/VITAMIN D NOS [Concomitant]
  5. FENOFIBRATE [Concomitant]
  6. LEVOXYL [Concomitant]
  7. METFORMIN [Concomitant]
  8. METOPROLOL [Concomitant]
  9. NORVASC [Concomitant]
  10. PRILOSEC                           /00661201/ [Concomitant]
  11. ZOLOFT [Concomitant]
  12. VITAMIN B 2 [Concomitant]
  13. ONGLYZA [Concomitant]
  14. ALDACTAZIDE [Concomitant]

REACTIONS (1)
  - Tongue neoplasm [Unknown]
